FAERS Safety Report 6771779-9 (Version None)
Quarter: 2010Q2

REPORT INFORMATION
  Report Type: 
  Country: None (occurrence: None)
  Receive Date: 20100616
  Receipt Date: 20100201
  Transmission Date: 20101027
  Serious: No
  Sender: FDA-Public Use
  Company Number: US-ASTRAZENECA-2010SE04435

PATIENT
  Age: 67 Year
  Sex: Male
  Weight: 78 kg

DRUGS (5)
  1. ATACAND [Suspect]
     Route: 048
     Dates: start: 20050101
  2. LIPITOR [Concomitant]
     Indication: BLOOD CHOLESTEROL
  3. ASPIRIN [Concomitant]
  4. LOPID [Concomitant]
     Indication: BLOOD CHOLESTEROL
  5. VITAMIN TAB [Concomitant]

REACTIONS (1)
  - BLOOD PRESSURE INCREASED [None]
